FAERS Safety Report 23264169 (Version 1)
Quarter: 2023Q4

REPORT INFORMATION
  Report Type: Spontaneous
  Country: EG (occurrence: EG)
  Receive Date: 20231205
  Receipt Date: 20231205
  Transmission Date: 20240110
  Serious: Yes (Hospitalization, Other)
  Sender: FDA-Public Use
  Company Number: EG-AMGEN-EGYSP2023213291

PATIENT

DRUGS (2)
  1. ADALIMUMAB [Suspect]
     Active Substance: ADALIMUMAB\ISOPROPYL ALCOHOL
     Indication: Colitis ulcerative
     Dosage: UNK
     Route: 058
  2. ADALIMUMAB [Suspect]
     Active Substance: ADALIMUMAB\ISOPROPYL ALCOHOL
     Indication: Crohn^s disease

REACTIONS (15)
  - Colitis ulcerative [Unknown]
  - Inflammatory bowel disease [Unknown]
  - Hyperbilirubinaemia [Unknown]
  - Bone operation [Unknown]
  - Tonsillectomy [Unknown]
  - Adenoidectomy [Unknown]
  - Eye operation [Unknown]
  - Tetany [Unknown]
  - Arthritis [Unknown]
  - Anaemia [Unknown]
  - Pneumonia [Unknown]
  - Urinary tract infection [Unknown]
  - Hepatitis C antibody positive [Unknown]
  - Aspartate aminotransferase increased [Unknown]
  - Alanine aminotransferase increased [Unknown]
